FAERS Safety Report 25366042 (Version 1)
Quarter: 2025Q2

REPORT INFORMATION
  Report Type: Spontaneous
  Country: JP (occurrence: JP)
  Receive Date: 20250528
  Receipt Date: 20250528
  Transmission Date: 20250716
  Serious: Yes (Death, Other)
  Sender: UCB
  Company Number: JP-UCBJ-CD202506758UCBPHAPROD

PATIENT
  Age: 3 Decade
  Sex: Female

DRUGS (2)
  1. VIMPAT [Suspect]
     Active Substance: LACOSAMIDE
     Indication: Epilepsy
     Dosage: 100 MILLIGRAM, 2X/DAY (BID)
     Route: 048
  2. FOSPHENYTOIN [FOSPHENYTOIN SODIUM] [Concomitant]
     Indication: Product used for unknown indication

REACTIONS (1)
  - Hepatocellular carcinoma [Fatal]
